FAERS Safety Report 4283587-1 (Version None)
Quarter: 2004Q1

REPORT INFORMATION
  Report Type: 
  Country: None (occurrence: None)
  Receive Date: 20040121
  Receipt Date: 20030922
  Transmission Date: 20041129
  Serious: Yes (Hospitalization)
  Sender: FDA-Public Use
  Company Number: A03200302203

PATIENT
  Age: 77 Year
  Sex: Female
  Weight: 56.6996 kg

DRUGS (8)
  1. PLAVIX [Suspect]
     Indication: CARDIAC DISORDER
     Dosage: 75 MG QD - ORAL
     Route: 048
     Dates: start: 20030101, end: 20030101
  2. ATORVASTATIN [Concomitant]
  3. AMLODIPINE BESYLATE [Concomitant]
  4. ATENOLOL [Concomitant]
  5. MULTI-VITAMINS [Concomitant]
  6. VITAMIN E [Concomitant]
  7. FLAXSEED OIL [Concomitant]
  8. CALCIUM [Concomitant]

REACTIONS (2)
  - CEREBROVASCULAR ACCIDENT [None]
  - PRURITUS GENERALISED [None]
